FAERS Safety Report 16932032 (Version 1)
Quarter: 2019Q4

REPORT INFORMATION
  Report Type: Spontaneous
  Country: US (occurrence: US)
  Receive Date: 20191017
  Receipt Date: 20191017
  Transmission Date: 20200122
  Serious: No
  Sender: FDA-Public Use
  Company Number: US-CHILTERN-US-2019-000629

PATIENT
  Age: 75 Year
  Sex: Female
  Weight: 107 kg

DRUGS (7)
  1. PROLIA [Concomitant]
     Active Substance: DENOSUMAB
     Indication: OSTEOPOROSIS
     Dosage: 1 INJECTION, MONTHLY
     Route: 058
     Dates: start: 2017, end: 20190529
  2. PRESERVISION AREDS [Concomitant]
     Active Substance: MINERALS\VITAMINS
     Indication: MACULAR DEGENERATION
     Dosage: 2 PER DAY
     Route: 048
     Dates: end: 20190529
  3. SYSTANE (HYPROMELLOSE 2910 (4000 MPA.S)) [Concomitant]
     Active Substance: HYPROMELLOSE 2910 (4000 MPA.S)
     Indication: DRY EYE
     Dosage: UNK, BOTH EYES , PRN
     Route: 047
  4. VITAMIN D3 [Concomitant]
     Active Substance: CHOLECALCIFEROL
     Indication: MINERAL SUPPLEMENTATION
     Dosage: 1  ADULT GUMMIE, QD
     Route: 048
     Dates: start: 2017, end: 20190529
  5. BIOTIN [Concomitant]
     Active Substance: BIOTIN
     Indication: VITAMIN SUPPLEMENTATION
     Dosage: 3000 MCG, QD
     Route: 048
     Dates: start: 2017, end: 20190529
  6. RHOPRESSA [Suspect]
     Active Substance: NETARSUDIL MESYLATE
     Indication: GLAUCOMA
     Dosage: 2 GTT, QD EACH EYE NIGHTLY
     Route: 047
     Dates: start: 20190326, end: 20190521
  7. CALCIUM [Concomitant]
     Active Substance: CALCIUM
     Indication: OSTEOPOROSIS
     Dosage: 500 MG, QD
     Route: 048
     Dates: start: 2017, end: 20190529

REACTIONS (3)
  - Eyelid ptosis [Recovered/Resolved]
  - Eyelid pain [Recovered/Resolved]
  - Eyelid irritation [Recovered/Resolved]

NARRATIVE: CASE EVENT DATE: 20190426
